FAERS Safety Report 9877956 (Version 3)
Quarter: 2014Q1

REPORT INFORMATION
  Report Type: Spontaneous
  Country: GB (occurrence: GB)
  Receive Date: 20140206
  Receipt Date: 20140313
  Transmission Date: 20141002
  Serious: Yes (Other)
  Sender: FDA-Public Use
  Company Number: PHFR2014GB001177

PATIENT
  Sex: Male

DRUGS (3)
  1. NILOTINIB [Suspect]
     Indication: CHRONIC MYELOID LEUKAEMIA
     Dosage: 400 MG, BID
     Dates: start: 20120628, end: 20140120
  2. PHENOBARBITON [Concomitant]
     Indication: EPILEPSY
     Dosage: 30 MG, QD
  3. EMANTIN [Concomitant]
     Indication: EPILEPSY
     Dosage: 100 MG, QD
     Route: 048

REACTIONS (5)
  - Cerebral infarction [Recovered/Resolved with Sequelae]
  - Headache [Unknown]
  - Cerebrovascular accident [Unknown]
  - Visual field defect [Unknown]
  - Drug ineffective [Unknown]
